FAERS Safety Report 13998635 (Version 2)
Quarter: 2017Q4

REPORT INFORMATION
  Report Type: Spontaneous
  Country: US (occurrence: US)
  Receive Date: 20170922
  Receipt Date: 20171027
  Transmission Date: 20180321
  Serious: No
  Sender: FDA-Public Use
  Company Number: US-ASTRAZENECA-2017SE93347

PATIENT
  Sex: Female

DRUGS (1)
  1. FARXIGA [Suspect]
     Active Substance: DAPAGLIFLOZIN PROPANEDIOL
     Route: 048

REACTIONS (7)
  - Limb discomfort [Unknown]
  - Adverse drug reaction [Unknown]
  - Nervous system disorder [Unknown]
  - Confusional state [Unknown]
  - Alopecia [Unknown]
  - Loss of personal independence in daily activities [Unknown]
  - Feeling jittery [Unknown]
